FAERS Safety Report 18199068 (Version 1)
Quarter: 2020Q3

REPORT INFORMATION
  Report Type: Spontaneous
  Country: US (occurrence: US)
  Receive Date: 20200826
  Receipt Date: 20200826
  Transmission Date: 20201103
  Serious: Yes (Hospitalization)
  Sender: FDA-Public Use
  Company Number: US-ELI_LILLY_AND_COMPANY-US202008007079

PATIENT
  Age: 81 Year
  Sex: Male

DRUGS (2)
  1. PROZAC [Suspect]
     Active Substance: FLUOXETINE HYDROCHLORIDE
     Indication: DEPRESSION
     Dosage: UNK UNK, UNKNOWN
     Route: 048
     Dates: start: 1995
  2. PROZAC [Suspect]
     Active Substance: FLUOXETINE HYDROCHLORIDE
     Dosage: UNK UNK, UNKNOWN
     Route: 048

REACTIONS (8)
  - Pain [Unknown]
  - Arthritis [Unknown]
  - Urethral obstruction [Unknown]
  - Back disorder [Unknown]
  - Arthropathy [Unknown]
  - Neuralgia [Unknown]
  - Enzyme level decreased [Unknown]
  - Prostatomegaly [Unknown]
